FAERS Safety Report 6182142-6 (Version None)
Quarter: 2009Q2

REPORT INFORMATION
  Report Type: 
  Country: None (occurrence: None)
  Receive Date: 20090507
  Receipt Date: 20090507
  Transmission Date: 20091009
  Serious: Yes (Other)
  Sender: FDA-Public Use
  Company Number: US-PFIZER INC-2009185483

PATIENT
  Sex: Male
  Weight: 125.62 kg

DRUGS (8)
  1. CHANTIX [Suspect]
     Indication: SMOKING CESSATION THERAPY
     Dosage: 0.5 MG, 1X/DAY
     Dates: start: 20081201, end: 20090101
  2. MONTELUKAST [Concomitant]
     Indication: ASTHMA
     Dosage: UNK
  3. XOPENEX [Concomitant]
     Indication: ASTHMA
     Dosage: UNK
  4. SPIRIVA [Concomitant]
     Indication: ASTHMA
     Dosage: UNK
  5. FLOVENT [Concomitant]
     Indication: ASTHMA
     Dosage: UNK
  6. ABILIFY [Concomitant]
     Indication: HALLUCINATION
     Dosage: UNK
  7. ABILIFY [Concomitant]
     Indication: DEPRESSION
  8. NEXIUM [Concomitant]
     Indication: GASTROOESOPHAGEAL REFLUX DISEASE
     Dosage: UNK

REACTIONS (1)
  - PHARYNGEAL OEDEMA [None]
